FAERS Safety Report 6458987-1 (Version None)
Quarter: 2009Q4

REPORT INFORMATION
  Report Type: 
  Country: None (occurrence: None)
  Receive Date: 20091127
  Receipt Date: 20091119
  Transmission Date: 20100525
  Serious: Yes (Death)
  Sender: FDA-Public Use
  Company Number: JP-BAYER-200912773BYL

PATIENT
  Age: 63 Year
  Sex: Male
  Weight: 61 kg

DRUGS (3)
  1. NEXAVAR [Suspect]
     Indication: HEPATIC NEOPLASM MALIGNANT
     Dosage: UNIT DOSE: 200 MG
     Route: 048
     Dates: start: 20090709, end: 20090728
  2. ALDACTONE [Concomitant]
     Route: 048
     Dates: start: 20090702, end: 20090729
  3. LASIX [Concomitant]
     Route: 048
     Dates: start: 20090702, end: 20090729

REACTIONS (2)
  - HEPATIC NEOPLASM MALIGNANT [None]
  - SHOCK HAEMORRHAGIC [None]
